FAERS Safety Report 14244799 (Version 3)
Quarter: 2018Q1

REPORT INFORMATION
  Report Type: Spontaneous
  Country: PT (occurrence: PT)
  Receive Date: 20171201
  Receipt Date: 20180327
  Transmission Date: 20180508
  Serious: Yes (Hospitalization, Other)
  Sender: FDA-Public Use
  Company Number: PT-ABBVIE-17P-130-2178541-00

PATIENT
  Age: 33 Year
  Sex: Female

DRUGS (5)
  1. LOSARTAN. [Concomitant]
     Active Substance: LOSARTAN
     Indication: HYPERTENSION
  2. PREDNISOLONE. [Suspect]
     Active Substance: PREDNISOLONE
     Indication: BEHCET^S SYNDROME
     Route: 065
  3. CYCLOSPORINE. [Suspect]
     Active Substance: CYCLOSPORINE
     Indication: BEHCET^S SYNDROME
     Route: 065
  4. PREDNISOLONE. [Suspect]
     Active Substance: PREDNISOLONE
     Route: 065
  5. ADALIMUMAB [Suspect]
     Active Substance: ADALIMUMAB
     Indication: BEHCET^S SYNDROME
     Route: 058

REACTIONS (12)
  - Disseminated tuberculosis [Recovering/Resolving]
  - Mycobacterium test positive [Recovering/Resolving]
  - Lymphadenopathy [Recovering/Resolving]
  - Tonsillar ulcer [Recovering/Resolving]
  - Tonsillitis [Recovering/Resolving]
  - Pulmonary tuberculosis [Recovering/Resolving]
  - Mycobacterium tuberculosis complex test positive [Recovering/Resolving]
  - Pyrexia [Recovered/Resolved]
  - Necrosis [Recovering/Resolving]
  - Odynophagia [Recovering/Resolving]
  - C-reactive protein increased [Recovering/Resolving]
  - Tonsillar hypertrophy [Recovering/Resolving]
